FAERS Safety Report 5788844-5 (Version None)
Quarter: 2008Q2

REPORT INFORMATION
  Report Type: 
  Country: None (occurrence: None)
  Receive Date: 20080626
  Receipt Date: 20071113
  Transmission Date: 20081010
  Serious: No
  Sender: FDA-Public Use
  Company Number: US-ASTRAZENECA-2007UW26361

PATIENT
  Age: 63 Year
  Sex: Male
  Weight: 88.5 kg

DRUGS (3)
  1. PULMICORT FLEXHALER [Suspect]
     Indication: ASTHMA
     Route: 055
     Dates: start: 20071001
  2. LIPITOR [Concomitant]
  3. LISINOPRIL [Concomitant]

REACTIONS (1)
  - CONDITION AGGRAVATED [None]
